FAERS Safety Report 8425420 (Version 5)
Quarter: 2012Q4

REPORT INFORMATION
  Report Type: 
  Country: US (occurrence: US)
  Receive Date: 20120224
  Receipt Date: 20121016
  Transmission Date: 20130627
  Serious: Yes (Hospitalization, Other)
  Sender: FDA-Public Use
  Company Number: US-009507513-1202USA03509

PATIENT

DRUGS (7)
  1. FOSAMAX [Suspect]
     Indication: OSTEOPOROSIS
     Dosage: 70 mg, UNK
     Route: 048
     Dates: start: 199803, end: 200810
  2. FOSAMAX [Suspect]
     Indication: OSTEOPENIA
     Dosage: 5 UNK, UNK
     Dates: start: 19990715
  3. FOSAMAX PLUS D [Suspect]
     Indication: PRODUCT USED FOR UNKNOWN INDICATION
     Dosage: 70 mg, UNK
     Route: 048
     Dates: start: 20061113, end: 20071019
  4. FOSAMAX PLUS D [Suspect]
     Dosage: 70 mg, UNK
     Route: 048
     Dates: start: 20091103, end: 20100909
  5. FOSAMAX [Suspect]
     Indication: PRODUCT USED FOR UNKNOWN INDICATION
     Dosage: 70 mg, UNK
     Route: 048
     Dates: start: 20080313, end: 20080604
  6. ALENDRONATE SODIUM [Suspect]
     Indication: PRODUCT USED FOR UNKNOWN INDICATION
     Dosage: 70 mg, UNK
     Dates: start: 20080705, end: 20091006
  7. VITAMINS (UNSPECIFIED) [Concomitant]
     Indication: PRODUCT USED FOR UNKNOWN INDICATION
     Dosage: UNK

REACTIONS (24)
  - Femur fracture [Recovered/Resolved with Sequelae]
  - Intramedullary rod insertion [Recovering/Resolving]
  - Hysterectomy [Unknown]
  - Knee arthroplasty [Recovered/Resolved]
  - Sinus operation [Unknown]
  - Vaginoplasty [Unknown]
  - Laser therapy [Unknown]
  - Low turnover osteopathy [Unknown]
  - Colonoscopy [Unknown]
  - Osteoarthritis [Unknown]
  - Vaginal prolapse repair [Unknown]
  - Leukocytosis [Unknown]
  - Meniscus injury [Unknown]
  - Arthroscopy [Unknown]
  - Chondroplasty [Unknown]
  - Meniscus removal [Unknown]
  - Carpal tunnel syndrome [Unknown]
  - Rheumatoid arthritis [Unknown]
  - Osteoarthritis [Not Recovered/Not Resolved]
  - Knee deformity [Not Recovered/Not Resolved]
  - Periarthritis [Unknown]
  - Joint manipulation [Unknown]
  - Sleep apnoea syndrome [Unknown]
  - Arthralgia [Unknown]
